FAERS Safety Report 9727762 (Version 1)
Quarter: 2013Q4

REPORT INFORMATION
  Report Type: Spontaneous
  Country: US (occurrence: US)
  Receive Date: 20131203
  Receipt Date: 20131203
  Transmission Date: 20140711
  Serious: No
  Sender: FDA-Public Use
  Company Number: US-ENDO PHARMACEUTICALS INC.-AMIT20130027

PATIENT
  Sex: Female

DRUGS (2)
  1. AMITRIPTYLINE HCL 25MG [Suspect]
     Indication: NEUROPATHY PERIPHERAL
     Route: 048
     Dates: start: 20130601, end: 2013
  2. AMITRIPTYLINE HCL 25MG [Suspect]
     Dosage: 100 - 125 MG
     Route: 048
     Dates: start: 2013

REACTIONS (2)
  - Intentional drug misuse [Unknown]
  - Drug ineffective [Unknown]
